FAERS Safety Report 21614082 (Version 1)
Quarter: 2022Q4

REPORT INFORMATION
  Report Type: Report from Study
  Country: US (occurrence: US)
  Receive Date: 20221118
  Receipt Date: 20221118
  Transmission Date: 20230113
  Serious: No
  Sender: FDA-Public Use
  Company Number: US-ABBVIE-22K-163-4470763-00

PATIENT
  Age: 36 Year
  Sex: Male

DRUGS (2)
  1. RINVOQ [Suspect]
     Active Substance: UPADACITINIB
     Indication: Alopecia
     Dosage: 15 MILLIGRAM
     Route: 048
     Dates: start: 202206
  2. DUPIXENT [Suspect]
     Active Substance: DUPILUMAB
     Indication: Neurodermatitis
     Dosage: 150 MILLIGRAM
     Route: 058
     Dates: start: 20220203

REACTIONS (2)
  - Onychoclasis [Unknown]
  - Off label use [Unknown]

NARRATIVE: CASE EVENT DATE: 20220601
